FAERS Safety Report 4863743-1 (Version None)
Quarter: 2005Q4

REPORT INFORMATION
  Report Type: 
  Country: None (occurrence: None)
  Receive Date: 20051222
  Receipt Date: 20050722
  Transmission Date: 20060501
  Serious: No
  Sender: FDA-Public Use
  Company Number: US-GLAXOSMITHKLINE-A0567257A

PATIENT
  Age: 50 Year
  Sex: Male

DRUGS (9)
  1. FLONASE [Suspect]
     Route: 045
  2. VALIUM [Concomitant]
  3. ZOCOR [Concomitant]
  4. PERCOCET [Concomitant]
  5. DILTIAZEM HCL [Concomitant]
  6. SELENIUM SULFIDE [Concomitant]
  7. CALCIUM GLUCONATE [Concomitant]
  8. SAW PALMETTO [Concomitant]
  9. ASPIRIN [Concomitant]

REACTIONS (5)
  - DRUG INEFFECTIVE [None]
  - LACRIMATION INCREASED [None]
  - OCULAR HYPERAEMIA [None]
  - PHARMACEUTICAL PRODUCT COMPLAINT [None]
  - SNORING [None]
